FAERS Safety Report 23965406 (Version 1)
Quarter: 2024Q2

REPORT INFORMATION
  Report Type: Report from Study
  Country: US (occurrence: US)
  Receive Date: 20240612
  Receipt Date: 20240612
  Transmission Date: 20240716
  Serious: Yes (Other)
  Sender: FDA-Public Use
  Company Number: US-AKCEA THERAPEUTICS, INC.-2024IS005212

PATIENT

DRUGS (1)
  1. TEGSEDI [Suspect]
     Active Substance: INOTERSEN SODIUM
     Indication: Hereditary neuropathic amyloidosis
     Dosage: 284 MILLIGRAM, QW (WEEKLY)
     Route: 058
     Dates: start: 20190101

REACTIONS (14)
  - Creatinine urine increased [Unknown]
  - Urine protein/creatinine ratio increased [Not Recovered/Not Resolved]
  - Bacterial test positive [Not Recovered/Not Resolved]
  - White blood cells urine positive [Not Recovered/Not Resolved]
  - Platelet count increased [Unknown]
  - Red blood cells urine positive [Not Recovered/Not Resolved]
  - Nitrite urine present [Unknown]
  - Urine ketone body present [Unknown]
  - Protein urine present [Not Recovered/Not Resolved]
  - Glomerular filtration rate decreased [Unknown]
  - Crystal urine present [Unknown]
  - Urinary casts [Not Recovered/Not Resolved]
  - Urinary sediment present [Not Recovered/Not Resolved]
  - Urine abnormality [Not Recovered/Not Resolved]

NARRATIVE: CASE EVENT DATE: 20200930
